FAERS Safety Report 21847779 (Version 1)
Quarter: 2023Q1

REPORT INFORMATION
  Report Type: Spontaneous
  Country: US (occurrence: None)
  Receive Date: 20230110
  Receipt Date: 20230110
  Transmission Date: 20230418
  Serious: No
  Sender: FDA-Public Use
  Company Number: None

PATIENT
  Age: 38 Year
  Sex: Male
  Weight: 78.75 kg

DRUGS (3)
  1. PAXLOVID [Suspect]
     Active Substance: NIRMATRELVIR\RITONAVIR
     Indication: COVID-19
     Dosage: FREQUENCY : TWICE A DAY;?
     Route: 048
     Dates: start: 20221229, end: 20230102
  2. Centrum daily multivitamin [Concomitant]
  3. Psyllium husk [Concomitant]

REACTIONS (2)
  - COVID-19 [None]
  - Taste disorder [None]

NARRATIVE: CASE EVENT DATE: 20230110
